FAERS Safety Report 12558964 (Version 2)
Quarter: 2016Q4

REPORT INFORMATION
  Report Type: Spontaneous
  Country: DE (occurrence: DE)
  Receive Date: 20160715
  Receipt Date: 20161124
  Transmission Date: 20170207
  Serious: Yes (Death, Hospitalization, Other)
  Sender: FDA-Public Use
  Company Number: DE-009507513-1607DEU005689

PATIENT
  Age: 56 Year
  Sex: Female
  Weight: 51 kg

DRUGS (8)
  1. RIBAVIRIN. [Suspect]
     Active Substance: RIBAVIRIN
     Indication: CHRONIC HEPATITIS C
     Dosage: 200 MG, (5 DOSAGE FORMS DAILY: 3-0-2)
     Route: 048
     Dates: start: 20150706
  2. THIAMINE. [Concomitant]
     Active Substance: THIAMINE
     Dosage: (1 DOSAGE FORM DAILY: 1-0-0)1 DF, QD
  3. SPIRONOLACTONE. [Concomitant]
     Active Substance: SPIRONOLACTONE
     Dosage: 100 MG, TID (1-1-1)
  4. DOCITON [Concomitant]
     Active Substance: PROPRANOLOL HYDROCHLORIDE
     Dosage: 10 MG, BID (2 DOSAGE FORMS DAILY: 1-0-1)
  5. PANTOPRAZOLE [Concomitant]
     Active Substance: PANTOPRAZOLE SODIUM
     Dosage: 40 MG, 1-0-1
     Route: 048
  6. PROPRANOLOL HYDROCHLORIDE. [Concomitant]
     Active Substance: PROPRANOLOL HYDROCHLORIDE
     Dosage: 10 MG, (4 DOSAGE FORMS DAILY :1-1-2)
     Route: 048
  7. HARVONI [Suspect]
     Active Substance: LEDIPASVIR\SOFOSBUVIR
     Indication: CHRONIC HEPATITIS C
     Dosage: 1 DF, 1-0-0
     Route: 048
     Dates: start: 20150706
  8. TORSEMIDE. [Concomitant]
     Active Substance: TORSEMIDE
     Indication: ASCITES
     Dosage: CHANGING DOSE: 10-20 MG
     Route: 048

REACTIONS (10)
  - Haemorrhage intracranial [Fatal]
  - Carotid artery stenosis [Fatal]
  - Ascites [Recovering/Resolving]
  - Hyponatraemia [Recovering/Resolving]
  - Feeling cold [Unknown]
  - Mobility decreased [Unknown]
  - Pleural effusion [Unknown]
  - Varices oesophageal [Recovering/Resolving]
  - Gastritis erosive [Unknown]
  - Gastrooesophageal reflux disease [Unknown]

NARRATIVE: CASE EVENT DATE: 2015
